FAERS Safety Report 15770797 (Version 2)
Quarter: 2019Q2

REPORT INFORMATION
  Report Type: Spontaneous
  Country: PT (occurrence: PT)
  Receive Date: 20181228
  Receipt Date: 20190416
  Transmission Date: 20190711
  Serious: Yes (Life-Threatening, Hospitalization)
  Sender: FDA-Public Use
  Company Number: PT-AMNEAL PHARMACEUTICALS-2018AMN01095

PATIENT
  Age: 54 Year
  Sex: Female
  Weight: 45.99 kg

DRUGS (3)
  1. MORPHINE [Concomitant]
     Active Substance: MORPHINE
     Indication: NECK PAIN
     Dosage: UNK
     Dates: start: 20181010
  2. IBUPROFEN. [Suspect]
     Active Substance: IBUPROFEN
     Indication: NECK PAIN
     Dosage: 1 DF, 2X/DAY
     Route: 048
     Dates: start: 20180906
  3. METOCLOPRAMIDE. [Concomitant]
     Active Substance: METOCLOPRAMIDE
     Indication: NAUSEA
     Dosage: UNK
     Dates: start: 20181007

REACTIONS (2)
  - Haemoglobin decreased [Recovered/Resolved]
  - Tumour haemorrhage [Recovered/Resolved]

NARRATIVE: CASE EVENT DATE: 20181104
